FAERS Safety Report 6975361-X (Version None)
Quarter: 2010Q3

REPORT INFORMATION
  Report Type: 
  Country: None (occurrence: None)
  Receive Date: 20100910
  Receipt Date: 20090427
  Transmission Date: 20110219
  Serious: No
  Sender: FDA-Public Use
  Company Number: US-WYE-H08614809

PATIENT
  Sex: Male

DRUGS (5)
  1. PRISTIQ [Suspect]
     Indication: MAJOR DEPRESSION
     Route: 048
  2. LOVASTATIN [Concomitant]
  3. FISH OIL, HYDROGENATED [Concomitant]
  4. XANAX [Concomitant]
  5. TRAZODONE HCL [Concomitant]

REACTIONS (4)
  - ANXIETY [None]
  - CHEST DISCOMFORT [None]
  - CONDITION AGGRAVATED [None]
  - UNEVALUABLE EVENT [None]
